FAERS Safety Report 23898818 (Version 11)
Quarter: 2025Q4

REPORT INFORMATION
  Report Type: Report from Study
  Country: JP (occurrence: JP)
  Receive Date: 20240525
  Receipt Date: 20251222
  Transmission Date: 20260117
  Serious: Yes (Death, Other)
  Sender: UCB
  Company Number: JP-UCBJ-CD202403848UCBPHAPROD

PATIENT
  Age: 49 Year
  Sex: Male
  Weight: 57.9 kg

DRUGS (45)
  1. ZILUCOPLAN [Suspect]
     Active Substance: ZILUCOPLAN
     Indication: Myasthenia gravis
     Dosage: 23 MILLIGRAM
     Dates: start: 20240322, end: 20240324
  2. ZILUCOPLAN [Suspect]
     Active Substance: ZILUCOPLAN
     Dosage: 23 MILLIGRAM
     Dates: start: 20240525, end: 20250625
  3. PREDONINE [Suspect]
     Active Substance: PREDNISOLONE
     Indication: Myasthenia gravis
     Dosage: 60 MILLIGRAM, DAILY
     Route: 061
     Dates: end: 20240403
  4. PREDONINE [Suspect]
     Active Substance: PREDNISOLONE
     Dosage: 50 MILLIGRAM, DAILY
     Route: 061
     Dates: start: 20240404, end: 20240410
  5. PREDONINE [Suspect]
     Active Substance: PREDNISOLONE
     Dosage: 45 MILLIGRAM, DAILY
     Route: 061
     Dates: start: 20240411, end: 20240417
  6. PREDONINE [Suspect]
     Active Substance: PREDNISOLONE
     Dosage: 40 MILLIGRAM, DAILY
     Route: 061
     Dates: start: 20240418, end: 20240501
  7. PREDONINE [Suspect]
     Active Substance: PREDNISOLONE
     Dosage: 35 MILLIGRAM,DAILY
     Route: 061
     Dates: start: 20240502, end: 20240508
  8. PREDONINE [Suspect]
     Active Substance: PREDNISOLONE
     Dosage: 30 MILLIGRAM, DAILY
     Route: 061
     Dates: start: 20240509, end: 20240515
  9. PREDONINE [Suspect]
     Active Substance: PREDNISOLONE
     Dosage: 25 MILLIGRAM, DAILY
     Route: 061
     Dates: start: 20240516, end: 20240522
  10. PREDONINE [Suspect]
     Active Substance: PREDNISOLONE
     Dosage: 20 MILLIGRAM,DAILY
     Route: 061
     Dates: start: 20240523, end: 20240603
  11. PREDONINE [Suspect]
     Active Substance: PREDNISOLONE
     Dosage: 17.5 MILLIGRAM,DAILY
     Route: 061
     Dates: start: 20240604, end: 20240715
  12. PREDONINE [Suspect]
     Active Substance: PREDNISOLONE
     Dosage: 15 MILLIGRAM, DAILY
     Route: 061
     Dates: start: 20240716, end: 20240826
  13. PREDONINE [Suspect]
     Active Substance: PREDNISOLONE
     Dosage: 12.5 MILLIGRAM, DAILY
     Route: 061
     Dates: start: 20240827, end: 20241111
  14. PREDONINE [Suspect]
     Active Substance: PREDNISOLONE
     Dosage: 10 MILLIGRAM, ONCE DAILY (QD)
     Route: 061
     Dates: start: 20241112, end: 20241125
  15. PREDONINE [Suspect]
     Active Substance: PREDNISOLONE
     Dosage: 15 MILLIGRAM, ONCE DAILY (QD)
     Route: 061
     Dates: start: 20241126, end: 20250610
  16. PREDONINE [Suspect]
     Active Substance: PREDNISOLONE
     Dosage: 12.5 MILLIGRAM, DAILY
     Route: 061
     Dates: start: 20250611, end: 20250625
  17. immunoglobulin therapy (IVIg) [Concomitant]
     Indication: Myasthenia gravis
     Dosage: UNK
     Dates: start: 20241211, end: 20241215
  18. MYTELASE [Concomitant]
     Active Substance: AMBENONIUM CHLORIDE
     Indication: Myasthenia gravis
     Dosage: 10 MILLIGRAM,DAILY
     Route: 061
     Dates: start: 20240330, end: 20240407
  19. MYTELASE [Concomitant]
     Active Substance: AMBENONIUM CHLORIDE
     Dosage: 20 MILLIGRAM,DAILY
     Route: 061
     Dates: start: 20240408, end: 20240702
  20. MYTELASE [Concomitant]
     Active Substance: AMBENONIUM CHLORIDE
     Dosage: 15 MILLIGRAM, DAILY
     Route: 061
     Dates: start: 20240806, end: 20241224
  21. MESTINON [Concomitant]
     Active Substance: PYRIDOSTIGMINE BROMIDE
     Indication: Myasthenia gravis
     Dosage: 180 MILLIGRAM, DAILY
     Route: 061
     Dates: start: 20240702, end: 20240806
  22. MESTINON [Concomitant]
     Active Substance: PYRIDOSTIGMINE BROMIDE
     Dosage: 180 MILLIGRAM,  DAILY
     Route: 061
     Dates: start: 20241224, end: 20250625
  23. PROGRAF [Concomitant]
     Active Substance: TACROLIMUS
     Indication: Myasthenia gravis
     Dosage: 3 MILLIGRAM, DAILY
     Route: 061
     Dates: end: 20250625
  24. TU-100 [Concomitant]
     Active Substance: ASIAN GINSENG\GINGER\ZANTHOXYLUM PIPERITUM FRUIT PULP
     Indication: Product used for unknown indication
     Dosage: 7.5 GRAM, DAILY
     Route: 061
  25. FAMOTIDINE [Concomitant]
     Active Substance: FAMOTIDINE
     Indication: Prophylaxis
     Dosage: 40 MILLIGRAM, DAILY
     Route: 061
  26. CARBOCYSTEINE [Concomitant]
     Active Substance: CARBOCYSTEINE
     Indication: Product used for unknown indication
     Dosage: 1500 MILLIGRAM, DAILY
     Route: 061
     Dates: end: 20250625
  27. MIYA-BM [Concomitant]
     Active Substance: CLOSTRIDIUM BUTYRICUM SPORES STRAIN M-55
     Indication: Product used for unknown indication
     Dosage: 60 MILLIGRAM, DAILY
     Route: 061
     Dates: end: 20250625
  28. ELIQUIS [Concomitant]
     Active Substance: APIXABAN
     Indication: Product used for unknown indication
     Dosage: 10 MILLIGRAM, DAILY
     Route: 061
     Dates: end: 20240404
  29. MAGNESIUM OXIDE [Concomitant]
     Active Substance: MAGNESIUM OXIDE
     Indication: Product used for unknown indication
     Dosage: 330 MILLIGRAM, DAILY
     Route: 061
     Dates: end: 20240509
  30. XARELTO [Concomitant]
     Active Substance: RIVAROXABAN
     Indication: Product used for unknown indication
     Dosage: 30 MILLIGRAM, DAILY
     Route: 061
     Dates: start: 20240515, end: 20240531
  31. XARELTO [Concomitant]
     Active Substance: RIVAROXABAN
     Dosage: 15 MILLIGRAM, DAILY
     Route: 061
     Dates: start: 20240601
  32. LEVOFLOXACIN HEMIHYDRATE [Concomitant]
     Active Substance: LEVOFLOXACIN
     Indication: COVID-19
     Dosage: UNK
     Route: 061
  33. VEKLURY [Concomitant]
     Active Substance: REMDESIVIR
     Indication: COVID-19
     Dosage: UNK
  34. AMPICILLIN [Concomitant]
     Active Substance: AMPICILLIN
     Indication: Product used for unknown indication
     Dosage: UNK
     Route: 061
  35. meningococcal quadrivalent [Concomitant]
     Indication: Product used for unknown indication
     Dosage: UNK
  36. meningococcal quadrivalent [Concomitant]
     Dosage: UNK
  37. meningococcal quadrivalent [Concomitant]
     Dosage: UNK
  38. meningococcal quadrivalent [Concomitant]
     Dosage: UNK
  39. EFGARTIGIMOD ALFA(GENETICAL RECOMBINATION) [Concomitant]
     Indication: Myasthenia gravis
     Dosage: 670 MILLIGRAM, WEEKLY (QW)
     Dates: start: 20241224, end: 20250114
  40. EFGARTIGIMOD ALFA(GENETICAL RECOMBINATION) [Concomitant]
     Dosage: 670 MILLIGRAM, WEEKLY (QW)
     Dates: start: 20250226, end: 20250318
  41. EFGARTIGIMOD ALFA(GENETICAL RECOMBINATION) [Concomitant]
     Dosage: 710 MILLIGRAM, WEEKLY (QW)
     Dates: start: 20250422, end: 20250513
  42. EFGARTIGIMOD ALFA(GENETICAL RECOMBINATION) [Concomitant]
     Dosage: 710 MILLIGRAM, WEEKLY (QW)
     Dates: start: 20250624, end: 20250624
  43. SULFAMETHOXAZOLE\TRIMETHOPRIM [Concomitant]
     Active Substance: SULFAMETHOXAZOLE\TRIMETHOPRIM
     Indication: Prophylaxis
     Dosage: UNK
     Route: 061
  44. ALENDRONATE [Concomitant]
     Active Substance: ALENDRONATE SODIUM
     Indication: Prophylaxis
     Dosage: 35 MILLIGRAM, ONCE DAILY (QD)
     Route: 061
     Dates: end: 20250621
  45. LANSOPRAZOLE [Concomitant]
     Active Substance: LANSOPRAZOLE
     Indication: Prophylaxis
     Dosage: 15 MILLIGRAM, ONCE DAILY (QD)
     Route: 061
     Dates: end: 20250625

REACTIONS (7)
  - Asphyxia [Fatal]
  - Pulmonary embolism [Recovering/Resolving]
  - Deep vein thrombosis [Recovering/Resolving]
  - Antiphospholipid syndrome [Not Recovered/Not Resolved]
  - Urinary tract infection [Recovered/Resolved]
  - Coronavirus infection [Recovered/Resolved]
  - Product storage error [Unknown]

NARRATIVE: CASE EVENT DATE: 20240408
